FAERS Safety Report 16232460 (Version 1)
Quarter: 2019Q2

REPORT INFORMATION
  Report Type: Other
  Country: US (occurrence: US)
  Receive Date: 20190424
  Receipt Date: 20190424
  Transmission Date: 20190711
  Serious: Yes (Other)
  Sender: FDA-Public Use
  Company Number: US-BIOVITRUM-2019US0520

PATIENT
  Age: 78 Year
  Sex: Female

DRUGS (1)
  1. KINERET [Suspect]
     Active Substance: ANAKINRA
     Route: 058
     Dates: start: 20190310

REACTIONS (3)
  - Joint swelling [Unknown]
  - Injection site pain [Unknown]
  - Urinary retention [Unknown]

NARRATIVE: CASE EVENT DATE: 201903
